FAERS Safety Report 20561206 (Version 1)
Quarter: 2022Q1

REPORT INFORMATION
  Report Type: Spontaneous
  Country: US (occurrence: None)
  Receive Date: 20220307
  Receipt Date: 20220307
  Transmission Date: 20220423
  Serious: Yes (Hospitalization)
  Sender: FDA-Public Use
  Company Number: None

PATIENT
  Sex: Male

DRUGS (2)
  1. PULMOZYME [Suspect]
     Active Substance: DORNASE ALFA
     Indication: Infective pulmonary exacerbation of cystic fibrosis
     Dosage: 2.5MG/2.5ML?USE 1 VIAL VIA NEBULIZER DAILY
     Route: 055
     Dates: start: 20200430
  2. TOBRAMYCIN [Concomitant]
     Active Substance: TOBRAMYCIN

REACTIONS (3)
  - SARS-CoV-2 test positive [None]
  - Therapy interrupted [None]
  - Infective pulmonary exacerbation of cystic fibrosis [None]
